FAERS Safety Report 7451180-5 (Version None)
Quarter: 2011Q2

REPORT INFORMATION
  Report Type: 
  Country: None (occurrence: None)
  Receive Date: 20110502
  Receipt Date: 20110421
  Transmission Date: 20111010
  Serious: Yes (Other)
  Sender: FDA-Public Use
  Company Number: PHHY2011JP34565

PATIENT
  Sex: Female
  Weight: 42 kg

DRUGS (4)
  1. VALSARTAN [Suspect]
     Indication: HYPERTENSION
     Dosage: 80 MG, QD
     Route: 048
     Dates: start: 20081210, end: 20090106
  2. VALSARTAN [Suspect]
     Dosage: 80 MG, BID
     Route: 048
     Dates: start: 20100310
  3. VALSARTAN [Suspect]
     Dosage: 120 MG, BID
     Route: 048
     Dates: start: 20090107, end: 20100309
  4. FLUITRAN [Concomitant]
     Indication: HYPERTENSION
     Dosage: 2 MG, UNK
     Route: 048
     Dates: start: 20081210

REACTIONS (4)
  - HYDROCEPHALUS [None]
  - BLOOD UREA INCREASED [None]
  - BLOOD PRESSURE DIASTOLIC INCREASED [None]
  - BLOOD PRESSURE DIASTOLIC DECREASED [None]
